FAERS Safety Report 9634072 (Version 1)
Quarter: 2013Q4

REPORT INFORMATION
  Report Type: Report from Study
  Country: US (occurrence: US)
  Receive Date: 20131021
  Receipt Date: 20131021
  Transmission Date: 20140711
  Serious: Yes (Hospitalization)
  Sender: FDA-Public Use
  Company Number: US-009507513-1310TWN006301

PATIENT
  Age: 62 Year
  Sex: Male
  Weight: 78.73 kg

DRUGS (8)
  1. DEXAMETHASONE [Suspect]
     Indication: PLASMA CELL MYELOMA
     Dosage: ON DAYS 1,2,4,5,8,9,11,12 EVERY 21 DAYS
     Route: 048
     Dates: start: 20130521, end: 20131001
  2. STUDY DRUG (UNSPECIFIED) [Suspect]
     Indication: PLASMA CELL MYELOMA
     Dosage: UNK
     Dates: start: 20130521, end: 20130910
  3. BORTEZOMIB [Suspect]
     Indication: PLASMA CELL MYELOMA
     Dosage: ON DAYS 1,4,8,11 EVERY 21 DAYS
     Route: 058
     Dates: start: 20130521, end: 20130910
  4. PROVENTIL [Concomitant]
     Dosage: UNK
     Dates: start: 20130614
  5. NEURONTIN [Concomitant]
     Dosage: UNK
     Dates: start: 20130730
  6. XARELTO [Concomitant]
     Dosage: UNK
     Dates: start: 20130703
  7. HUMALOG [Concomitant]
     Dosage: UNK
     Dates: start: 20130722
  8. HYDROCODONE [Concomitant]
     Dosage: UNK
     Dates: start: 20130506

REACTIONS (2)
  - Troponin increased [Unknown]
  - Chronic obstructive pulmonary disease [Unknown]
